FAERS Safety Report 10475665 (Version 3)
Quarter: 2014Q4

REPORT INFORMATION
  Report Type: Spontaneous
  Country: US (occurrence: US)
  Receive Date: 20140925
  Receipt Date: 20141119
  Transmission Date: 20150528
  Serious: Yes (Other)
  Sender: FDA-Public Use
  Company Number: US-GALDERMA-US14003517

PATIENT
  Age: 71 Year
  Sex: Male
  Weight: 58 kg

DRUGS (5)
  1. FINASTERIDE. [Concomitant]
     Active Substance: FINASTERIDE
     Route: 048
  2. METROGEL [Suspect]
     Active Substance: METRONIDAZOLE
     Indication: ROSACEA
     Route: 061
     Dates: start: 1999
  3. METRONIDAZOLE TOPICAL GEL, 0.75% [Suspect]
     Active Substance: METRONIDAZOLE
     Indication: ROSACEA
     Route: 061
  4. TAMSULOSIN HYDROCHLORIDE. [Concomitant]
     Active Substance: TAMSULOSIN HYDROCHLORIDE
     Route: 048
  5. METRONIDAZOLE GEL, 1% [Suspect]
     Active Substance: METRONIDAZOLE
     Indication: ROSACEA
     Dosage: 1%
     Route: 061
     Dates: start: 2012

REACTIONS (4)
  - Bladder transitional cell carcinoma [Unknown]
  - Renal cyst [Unknown]
  - Inappropriate schedule of drug administration [Not Recovered/Not Resolved]
  - Condition aggravated [Unknown]

NARRATIVE: CASE EVENT DATE: 2000
